FAERS Safety Report 12993172 (Version 1)
Quarter: 2016Q4

REPORT INFORMATION
  Report Type: Report from Study
  Country: None (occurrence: BR)
  Receive Date: 20161202
  Receipt Date: 20161202
  Transmission Date: 20170207
  Serious: Yes (Hospitalization, Other)
  Sender: FDA-Public Use
  Company Number: BR-ABBVIE-16K-020-1793776-00

PATIENT
  Age: 39 Year
  Sex: Female
  Weight: 71 kg

DRUGS (3)
  1. HUMIRA [Suspect]
     Active Substance: ADALIMUMAB
     Indication: ANKYLOSING SPONDYLITIS
     Route: 058
     Dates: start: 20140805, end: 20161021
  2. VITAMIN C + ASSOCIATIONS (KOUBO) [Concomitant]
     Indication: OBESITY
     Route: 048
     Dates: start: 201609
  3. CHROMIUM PICOLINATE [Concomitant]
     Active Substance: CHROMIUM PICOLINATE
     Indication: OBESITY
     Route: 048
     Dates: start: 201609

REACTIONS (9)
  - Dermatitis allergic [Recovered/Resolved]
  - Skin lesion [Not Recovered/Not Resolved]
  - Skin cancer [Unknown]
  - Laryngeal obstruction [Recovered/Resolved]
  - Urticaria [Recovered/Resolved]
  - Musculoskeletal pain [Recovered/Resolved]
  - Skin atrophy [Not Recovered/Not Resolved]
  - Pustular psoriasis [Recovering/Resolving]
  - Pain in extremity [Recovered/Resolved]

NARRATIVE: CASE EVENT DATE: 201605
